FAERS Safety Report 4568684-5 (Version None)
Quarter: 2005Q1

REPORT INFORMATION
  Report Type: 
  Country: None (occurrence: None)
  Receive Date: 20050202
  Receipt Date: 20050126
  Transmission Date: 20050727
  Serious: Yes (Hospitalization)
  Sender: FDA-Public Use
  Company Number: GR-MERCK-0501GRC00007

PATIENT
  Age: 42 Month
  Sex: Male
  Weight: 18 kg

DRUGS (4)
  1. SINGULAIR [Suspect]
     Indication: ASTHMA
     Route: 048
     Dates: start: 20040901, end: 20050102
  2. SINGULAIR [Suspect]
     Route: 048
     Dates: start: 20050104
  3. ALBUTEROL AND IPRATROPIUM BROMIDE [Concomitant]
     Indication: ASTHMA
     Route: 055
     Dates: start: 20040101
  4. FLUTICASONE PROPIONATE [Concomitant]
     Indication: ASTHMA
     Route: 055
     Dates: start: 20041101

REACTIONS (2)
  - EPILEPSY [None]
  - PRESCRIBED OVERDOSE [None]
